FAERS Safety Report 4509904-2 (Version None)
Quarter: 2004Q4

REPORT INFORMATION
  Report Type: 
  Country: None (occurrence: None)
  Receive Date: 20041119
  Receipt Date: 20041111
  Transmission Date: 20050328
  Serious: No
  Sender: FDA-Public Use
  Company Number: US200411-0698-1

PATIENT
  Sex: Female

DRUGS (1)
  1. LYMPHAZURIN [Suspect]
     Indication: MASTECTOMY
     Dosage: 5CC SQ
     Route: 058
     Dates: start: 20041111

REACTIONS (4)
  - BLOOD GASES ABNORMAL [None]
  - BLOOD PRESSURE DECREASED [None]
  - HYPERSENSITIVITY [None]
  - TACHYCARDIA [None]
